FAERS Safety Report 5904509-0 (Version None)
Quarter: 2008Q4

REPORT INFORMATION
  Report Type: 
  Country: None (occurrence: None)
  Receive Date: 20081001
  Receipt Date: 20080922
  Transmission Date: 20090506
  Serious: Yes (Hospitalization)
  Sender: FDA-Public Use
  Company Number: US-ELI_LILLY_AND_COMPANY-US200809006306

PATIENT
  Age: 63 Year
  Sex: Male
  Weight: 94 kg

DRUGS (11)
  1. HUMALOG [Suspect]
     Dosage: 25 U, 2/D
  2. SUNITINIB [Concomitant]
     Dosage: 12.5 MG, 4/D
     Dates: start: 20080529
  3. SORAFENIB [Concomitant]
     Dosage: 400 MG, 2/D
     Route: 048
  4. ACCUPRIL [Concomitant]
     Dosage: 40 MG, DAILY (1/D)
  5. ASPIRIN [Concomitant]
     Dosage: 81 MG, UNK
  6. COREG [Concomitant]
     Dosage: 12.5 MG, DAILY (1/D)
  7. HYDRALAZINE HYDROCHLORIDE [Concomitant]
     Dosage: 25 MG, 3/D
  8. LEXAPRO [Concomitant]
     Dosage: 20 MG, DAILY (1/D)
  9. NOVOLOG [Concomitant]
     Dosage: 100 U, 3/D
     Route: 058
  10. PRAVACHOL [Concomitant]
     Dosage: 40 MG, DAILY (1/D)
  11. OMACOR [Concomitant]
     Dosage: 1000 MG, 4/D

REACTIONS (4)
  - BRADYCARDIA [None]
  - HAEMOGLOBIN DECREASED [None]
  - HYPOGLYCAEMIC UNCONSCIOUSNESS [None]
  - SYNCOPE [None]
